FAERS Safety Report 5220971-3 (Version None)
Quarter: 2007Q1

REPORT INFORMATION
  Report Type: 
  Country: None (occurrence: None)
  Receive Date: 20070123
  Receipt Date: 20070109
  Transmission Date: 20070707
  Serious: Yes (Hospitalization)
  Sender: FDA-Public Use
  Company Number: 2007RR-05207

PATIENT
  Age: 34 Year
  Sex: Female

DRUGS (4)
  1. AMOXICILLIN TRIHYDRATE [Suspect]
     Indication: PROPHYLAXIS
  2. DICLOFENAC SODIUM [Suspect]
     Indication: ANALGESIC THERAPY
  3. ENOXAPARIN SODIUM [Suspect]
     Indication: THROMBOSIS PROPHYLAXIS
  4. GRANISETRON  HCL [Suspect]

REACTIONS (8)
  - ACUTE GENERALISED EXANTHEMATOUS PUSTULOSIS [None]
  - ERYTHEMA [None]
  - MALAISE [None]
  - PYREXIA [None]
  - RASH [None]
  - SKIN EXFOLIATION [None]
  - SKIN OEDEMA [None]
  - TACHYCARDIA [None]
